FAERS Safety Report 9203805 (Version 1)
Quarter: 2013Q2

REPORT INFORMATION
  Report Type: Spontaneous
  Country: US (occurrence: US)
  Receive Date: 20130402
  Receipt Date: 20130402
  Transmission Date: 20140414
  Serious: Yes (Hospitalization)
  Sender: FDA-Public Use
  Company Number: US-BAYER-2013-038346

PATIENT
  Age: 39 Year
  Sex: Female
  Weight: 81.63 kg

DRUGS (7)
  1. YAZ [Suspect]
  2. YASMIN [Suspect]
  3. OCELLA [Suspect]
  4. VALACICLOVIR [Concomitant]
     Dosage: 500 MCG
  5. AMITIZA [Concomitant]
     Indication: GASTROINTESTINAL DISORDER
     Dosage: 24 MCG
  6. TOBRAMYCIN-DEXAMETHOPHTH [Concomitant]
  7. VALTREX [Concomitant]

REACTIONS (2)
  - Pulmonary embolism [Recovered/Resolved]
  - Deep vein thrombosis [Recovered/Resolved]
